FAERS Safety Report 25135199 (Version 8)
Quarter: 2025Q4

REPORT INFORMATION
  Report Type: Report from Study
  Country: CO (occurrence: CO)
  Receive Date: 20250328
  Receipt Date: 20251218
  Transmission Date: 20260118
  Serious: Yes (Hospitalization, Other)
  Sender: MIRUM PHARMACEUTICALS
  Company Number: CO-MIRUM PHARMACEUTICALS, INC.-CO-MIR-24-00939

PATIENT

DRUGS (16)
  1. LIVMARLI [Suspect]
     Active Substance: MARALIXIBAT CHLORIDE
     Indication: Alagille syndrome
     Dosage: 0.7 MILLILITER, QD
     Route: 048
     Dates: start: 20251023, end: 20251208
  2. LIVMARLI [Suspect]
     Active Substance: MARALIXIBAT CHLORIDE
     Dosage: 0.7 MILLILITER, QD
     Route: 048
     Dates: start: 20250708, end: 20250818
  3. LIVMARLI [Suspect]
     Active Substance: MARALIXIBAT CHLORIDE
     Dosage: 0.7 MILLILITER, QD
     Route: 048
     Dates: start: 20250104, end: 20250220
  4. LIVMARLI [Suspect]
     Active Substance: MARALIXIBAT CHLORIDE
     Dosage: 0.7 MILLILITER, QD
     Route: 048
     Dates: start: 20241002, end: 20241120
  5. LIVMARLI [Suspect]
     Active Substance: MARALIXIBAT CHLORIDE
     Dosage: 0.35 MILLILITER, QD
     Route: 048
     Dates: start: 20240925, end: 20241001
  6. PEDIAVIT [ASCORBIC ACID;COD-LIVER OIL;COLECALCIFEROL;NICOTINAMIDE;PYRI [Concomitant]
     Indication: Product used for unknown indication
     Dosage: 20 DROP, QD
     Route: 065
  7. VITAMIN K [Concomitant]
     Active Substance: PHYTONADIONE
     Indication: Product used for unknown indication
     Dosage: 5 MILLIGRAM, EVERY MONDAY, WEDNESDAY AND FRIDAY
     Route: 065
  8. RIFAMPIN [Concomitant]
     Active Substance: RIFAMPIN
     Indication: Product used for unknown indication
     Dosage: 150 MILLIGRAM, Q12H
     Route: 065
  9. URSODIOL [Concomitant]
     Active Substance: URSODIOL
     Indication: Product used for unknown indication
     Dosage: 150 MILLIGRAM, Q8H
     Route: 065
  10. URSODIOL [Concomitant]
     Active Substance: URSODIOL
     Dosage: 300 MILLIGRAM, Q12H
     Route: 065
     Dates: start: 2025
  11. URSODIOL [Concomitant]
     Active Substance: URSODIOL
     Dosage: UNK UNKNOWN, UNK
     Route: 065
     Dates: start: 20250923
  12. CHOLECALCIFEROL [Concomitant]
     Active Substance: CHOLECALCIFEROL
     Indication: Product used for unknown indication
     Dosage: 4000 INTERNATIONAL UNIT, QD
     Route: 065
  13. CHOLECALCIFEROL [Concomitant]
     Active Substance: CHOLECALCIFEROL
     Dosage: 7000 INTERNATIONAL UNIT (MONDAY-WEDNESDAY-FRIDAY)
     Route: 065
     Dates: start: 2025
  14. CHOLECALCIFEROL [Concomitant]
     Active Substance: CHOLECALCIFEROL
     Dosage: 7000 INTERNATIONAL UNIT (MONDAY-WEDNESDAY-FRIDAY)
     Route: 065
     Dates: start: 20250923
  15. ENALAPRIL [Concomitant]
     Active Substance: ENALAPRIL
     Indication: Product used for unknown indication
     Dosage: UNK
     Route: 048
  16. .ALPHA.-TOCOPHEROL [Concomitant]
     Active Substance: .ALPHA.-TOCOPHEROL
     Indication: Product used for unknown indication
     Dosage: 800 INTERNATIONAL UNIT, QD
     Route: 065

REACTIONS (17)
  - Glycosylated haemoglobin increased [Not Recovered/Not Resolved]
  - Diabetic metabolic decompensation [Not Recovered/Not Resolved]
  - Portal hypertensive gastropathy [Not Recovered/Not Resolved]
  - Varices oesophageal [Not Recovered/Not Resolved]
  - Hydronephrosis [Not Recovered/Not Resolved]
  - Bladder trabeculation [Recovered/Resolved]
  - Dental caries [Recovered/Resolved]
  - Pruritus [Not Recovered/Not Resolved]
  - Transaminases increased [Not Recovered/Not Resolved]
  - Hyperglycaemia [Not Recovered/Not Resolved]
  - Blood alkaline phosphatase increased [Not Recovered/Not Resolved]
  - Transaminases increased [Not Recovered/Not Resolved]
  - Bile acids increased [Not Recovered/Not Resolved]
  - Blood bilirubin increased [Not Recovered/Not Resolved]
  - Blood urea increased [Not Recovered/Not Resolved]
  - Product dispensing issue [Recovered/Resolved]
  - Therapy interrupted [Recovered/Resolved]

NARRATIVE: CASE EVENT DATE: 20241007
